FAERS Safety Report 18763002 (Version 2)
Quarter: 2021Q1

REPORT INFORMATION
  Report Type: Spontaneous
  Country: JP (occurrence: JP)
  Receive Date: 20210120
  Receipt Date: 20210209
  Transmission Date: 20210419
  Serious: Yes (Other)
  Sender: FDA-Public Use
  Company Number: JP-PFIZER INC-2021030889

PATIENT

DRUGS (3)
  1. LEVOLEUCOVORIN CALCIUM. [Suspect]
     Active Substance: LEVOLEUCOVORIN CALCIUM
     Dosage: UNK
  2. IRINOTECAN HCL HOSPIRA [Suspect]
     Active Substance: IRINOTECAN HYDROCHLORIDE
     Dosage: UNK
  3. OXALIPLATIN. [Suspect]
     Active Substance: OXALIPLATIN
     Dosage: UNK

REACTIONS (3)
  - Sinus node dysfunction [Unknown]
  - Loss of consciousness [Unknown]
  - Bradycardia [Unknown]
